FAERS Safety Report 5434304-0 (Version None)
Quarter: 2007Q3

REPORT INFORMATION
  Report Type: 
  Country: None (occurrence: None)
  Receive Date: 20070829
  Receipt Date: 20070815
  Transmission Date: 20080115
  Serious: Yes (Hospitalization, Other)
  Sender: FDA-Public Use
  Company Number: S07-UKI-03633-01

PATIENT
  Age: 53 Year
  Sex: Female

DRUGS (2)
  1. CIPRALEX (ESCITALOPRAM) [Suspect]
     Indication: DEPRESSION
     Dosage: 5 MG QD PO
     Route: 048
     Dates: start: 20070727, end: 20070731
  2. UNSPECIFIED HORMONE REPLACEMENT THERAPY (ANOVLAR) [Concomitant]

REACTIONS (8)
  - ABDOMINAL PAIN [None]
  - BALANCE DISORDER [None]
  - DIZZINESS [None]
  - FATIGUE [None]
  - LETHARGY [None]
  - PALPITATIONS [None]
  - PARAESTHESIA [None]
  - VISION BLURRED [None]
